FAERS Safety Report 18901466 (Version 3)
Quarter: 2021Q4

REPORT INFORMATION
  Report Type: Spontaneous
  Country: US (occurrence: US)
  Receive Date: 20210216
  Receipt Date: 20211228
  Transmission Date: 20220303
  Serious: No
  Sender: FDA-Public Use
  Company Number: US-PFIZER INC-2021001068

PATIENT
  Age: 82 Year
  Sex: Female
  Weight: 52.608 kg

DRUGS (5)
  1. PHOSPHOLINE IODIDE [Suspect]
     Active Substance: ECHOTHIOPHATE IODIDE
     Indication: Glaucoma
     Dosage: 5 ML, 1X/DAY (BOTH EYES)
     Dates: start: 202008
  2. ALPHAGAN P [Concomitant]
     Active Substance: BRIMONIDINE TARTRATE
     Dosage: UNK
     Dates: start: 2018
  3. DORZOLAMIDE + TIMOLOL [Concomitant]
     Dosage: UNK
     Dates: start: 2018
  4. RHOPRESSA [Concomitant]
     Active Substance: NETARSUDIL MESYLATE
     Dosage: UNK
     Dates: start: 202010
  5. VYZULTA [Concomitant]
     Active Substance: LATANOPROSTENE BUNOD
     Dosage: UNK
     Dates: start: 202008

REACTIONS (2)
  - Visual impairment [Not Recovered/Not Resolved]
  - Accidental exposure to product [Unknown]
